FAERS Safety Report 7497798 (Version 6)
Quarter: 2013Q2

REPORT INFORMATION
  Report Type: Spontaneous
  Country: JP (occurrence: JP)
  Receive Date: 20100722
  Receipt Date: 20130501
  Transmission Date: 20140414
  Serious: Yes (Other)
  Sender: FDA-Public Use
  Company Number: PHHY2009JP30124

PATIENT
  Age: 39 Year
  Sex: Male

DRUGS (7)
  1. NEORAL [Suspect]
     Indication: RENAL TRANSPLANT
     Dosage: UNK
     Route: 048
     Dates: start: 20090702, end: 20090803
  2. NEORAL [Suspect]
     Dosage: UNK
     Dates: start: 200909
  3. BREDININ [Suspect]
     Dosage: UNK
     Dates: start: 20090702
  4. PREDONINE [Suspect]
     Dosage: UNK
     Dates: start: 20090708
  5. NORVASC [Concomitant]
     Route: 048
  6. ATELEC [Concomitant]
  7. ARTIST [Concomitant]

REACTIONS (9)
  - Diabetic enteropathy [Unknown]
  - Malabsorption [Unknown]
  - Hypertension [Recovered/Resolved]
  - Nephropathy toxic [Recovering/Resolving]
  - Blood creatinine increased [Recovering/Resolving]
  - Urine output decreased [Unknown]
  - Toxicity to various agents [Recovering/Resolving]
  - Blood uric acid increased [Recovered/Resolved]
  - Immunosuppressant drug level increased [Recovering/Resolving]
